FAERS Safety Report 25502751 (Version 1)
Quarter: 2025Q3

REPORT INFORMATION
  Report Type: Spontaneous
  Country: EU (occurrence: EU)
  Receive Date: 20250702
  Receipt Date: 20250702
  Transmission Date: 20251021
  Serious: Yes (Other)
  Sender: RANBAXY
  Company Number: EU-SUN PHARMACEUTICAL INDUSTRIES LTD-2025R1-514164

PATIENT
  Age: 81 Year
  Sex: Male

DRUGS (2)
  1. FLECAINIDE [Suspect]
     Active Substance: FLECAINIDE
     Indication: Sinus node dysfunction
     Dosage: 100 MILLIGRAM, TID
     Route: 065
  2. ATENOLOL [Suspect]
     Active Substance: ATENOLOL
     Indication: Sinus node dysfunction
     Dosage: 50 MILLIGRAM, QD
     Route: 065

REACTIONS (3)
  - Toxicity to various agents [Unknown]
  - Ventricular tachycardia [Unknown]
  - Electrocardiogram QRS complex prolonged [Unknown]
